FAERS Safety Report 9149359 (Version 1)
Quarter: 2013Q1

REPORT INFORMATION
  Report Type: Spontaneous
  Country: US (occurrence: US)
  Receive Date: 20130308
  Receipt Date: 20130308
  Transmission Date: 20140127
  Serious: Yes (Death)
  Sender: FDA-Public Use
  Company Number: US-BRISTOL-MYERS SQUIBB COMPANY-17432998

PATIENT
  Age: 70 Year
  Sex: Female

DRUGS (4)
  1. SPRYCEL (CML) TABS 100 MG [Suspect]
  2. FOSAMAX [Concomitant]
  3. PANTOPRAZOLE [Concomitant]
  4. ZOCOR [Concomitant]

REACTIONS (1)
  - Death [Fatal]
